FAERS Safety Report 4644701-9 (Version None)
Quarter: 2005Q2

REPORT INFORMATION
  Report Type: 
  Country: None (occurrence: None)
  Receive Date: 20050426
  Receipt Date: 20050412
  Transmission Date: 20051028
  Serious: Yes (Hospitalization, Other)
  Sender: FDA-Public Use
  Company Number: US-JNJFOC-20050403128

PATIENT
  Age: 48 Year
  Sex: Male

DRUGS (4)
  1. DURAGESIC [Suspect]
     Route: 062
     Dates: start: 20050101
  2. DURAGESIC [Suspect]
     Route: 062
     Dates: start: 20050101
  3. METHADONE HCL [Suspect]
  4. METHADONE HCL [Suspect]

REACTIONS (2)
  - CONVULSION [None]
  - DRUG WITHDRAWAL SYNDROME [None]
